FAERS Safety Report 23727811 (Version 1)
Quarter: 2024Q2

REPORT INFORMATION
  Report Type: Spontaneous
  Country: US (occurrence: US)
  Receive Date: 20240410
  Receipt Date: 20240410
  Transmission Date: 20240716
  Serious: No
  Sender: FDA-Public Use
  Company Number: US-CTI BIOPHARMA-2024US04525

PATIENT
  Age: 81 Year
  Sex: Female

DRUGS (2)
  1. VONJO [Suspect]
     Active Substance: PACRITINIB
     Indication: Myelofibrosis
     Dosage: 100 MG, QD
     Route: 048
     Dates: start: 20240215
  2. VONJO [Suspect]
     Active Substance: PACRITINIB
     Dosage: 100MG TWICE DAILY
     Route: 048

REACTIONS (3)
  - Insomnia [Unknown]
  - Rash [Unknown]
  - Eye swelling [Unknown]
